FAERS Safety Report 18106992 (Version 2)
Quarter: 2020Q3

REPORT INFORMATION
  Report Type: Spontaneous
  Country: US (occurrence: US)
  Receive Date: 20200803
  Receipt Date: 20200924
  Transmission Date: 20201103
  Serious: No
  Sender: FDA-Public Use
  Company Number: US-PFIZER INC-2020290187

PATIENT
  Age: 66 Year
  Sex: Male
  Weight: 107.95 kg

DRUGS (1)
  1. PROTONIX [Suspect]
     Active Substance: PANTOPRAZOLE SODIUM
     Indication: GASTROINTESTINAL DISORDER
     Dosage: 40 MG, DAILY
     Route: 048
     Dates: start: 2000

REACTIONS (10)
  - Hypersensitivity [Unknown]
  - Asthenia [Unknown]
  - Anxiety [Unknown]
  - Pruritus [Unknown]
  - Back pain [Unknown]
  - Insomnia [Unknown]
  - Oesophageal pain [Unknown]
  - Feeling abnormal [Unknown]
  - Product quality issue [Unknown]
  - Impaired quality of life [Unknown]
